FAERS Safety Report 12514090 (Version 2)
Quarter: 2016Q3

REPORT INFORMATION
  Report Type: Spontaneous
  Country: US (occurrence: US)
  Receive Date: 20160630
  Receipt Date: 20160912
  Transmission Date: 20161109
  Serious: Yes (Hospitalization, Other)
  Sender: FDA-Public Use
  Company Number: US-JNJFOC-20160527950

PATIENT
  Age: 74 Year

DRUGS (8)
  1. XARELTO [Suspect]
     Active Substance: RIVAROXABAN
     Indication: CARDIAC STRESS TEST ABNORMAL
     Route: 048
     Dates: start: 2013, end: 201312
  2. XARELTO [Suspect]
     Active Substance: RIVAROXABAN
     Indication: CORONARY ARTERY DISEASE
     Route: 048
     Dates: start: 20130204, end: 20131113
  3. XARELTO [Suspect]
     Active Substance: RIVAROXABAN
     Indication: CARDIAC STRESS TEST ABNORMAL
     Route: 048
     Dates: start: 20130204, end: 20131113
  4. XARELTO [Suspect]
     Active Substance: RIVAROXABAN
     Indication: HYPERLIPIDAEMIA
     Route: 048
     Dates: start: 20130204, end: 20131113
  5. XARELTO [Suspect]
     Active Substance: RIVAROXABAN
     Indication: NON-CARDIAC CHEST PAIN
     Route: 048
     Dates: start: 20130204, end: 20131113
  6. XARELTO [Suspect]
     Active Substance: RIVAROXABAN
     Indication: NON-CARDIAC CHEST PAIN
     Route: 048
     Dates: start: 2013, end: 201312
  7. XARELTO [Suspect]
     Active Substance: RIVAROXABAN
     Indication: HYPERLIPIDAEMIA
     Route: 048
     Dates: start: 2013, end: 201312
  8. XARELTO [Suspect]
     Active Substance: RIVAROXABAN
     Indication: CORONARY ARTERY DISEASE
     Route: 048
     Dates: start: 2013, end: 201312

REACTIONS (4)
  - Product use issue [Unknown]
  - Gastrointestinal haemorrhage [Unknown]
  - Internal haemorrhage [Unknown]
  - Off label use [Unknown]

NARRATIVE: CASE EVENT DATE: 20130204
